FAERS Safety Report 5593581-6 (Version None)
Quarter: 2007Q4

REPORT INFORMATION
  Report Type: 
  Country: None (occurrence: None)
  Receive Date: 20071218
  Receipt Date: 20061128
  Transmission Date: 20080405
  Serious: Yes (Hospitalization, Other)
  Sender: FDA-Public Use
  Company Number: 2006150343

PATIENT
  Sex: Female

DRUGS (2)
  1. BEXTRA [Suspect]
     Dosage: ORAL
     Route: 048
     Dates: start: 20030520
  2. VIOXX [Suspect]
     Dosage: ORAL
     Route: 048
     Dates: start: 20030101

REACTIONS (1)
  - MYOCARDIAL INFARCTION [None]
